FAERS Safety Report 8623546-9 (Version None)
Quarter: 2012Q3

REPORT INFORMATION
  Report Type: 
  Country: None (occurrence: None)
  Receive Date: 20120827
  Receipt Date: 20120818
  Transmission Date: 20120928
  Serious: Yes (Disabling, Other)
  Sender: FDA-Public Use
  Company Number: FR-B.I. PHARMACEUTICALS,INC./RIDGEFIELD-2012-FF-01073FF

PATIENT
  Sex: Male

DRUGS (4)
  1. VITAMIN B-12 [Concomitant]
     Route: 042
  2. RAMIPRIL [Concomitant]
  3. PRADAXA [Suspect]
     Indication: ATRIAL FIBRILLATION
     Dosage: 220 MG
     Route: 048
     Dates: start: 20120301
  4. MYTELASE [Concomitant]

REACTIONS (2)
  - ABASIA [None]
  - MYASTHENIA GRAVIS [None]
